FAERS Safety Report 5572953-X (Version None)
Quarter: 2007Q4

REPORT INFORMATION
  Report Type: 
  Country: None (occurrence: None)
  Receive Date: 20071224
  Receipt Date: 20071217
  Transmission Date: 20080405
  Serious: Yes (Death)
  Sender: FDA-Public Use
  Company Number: US-BRISTOL-MYERS SQUIBB COMPANY-14013577

PATIENT
  Age: 54 Year
  Sex: Female

DRUGS (8)
  1. IXEMPRA FOR INJ [Suspect]
     Indication: BREAST CANCER METASTATIC
     Route: 042
     Dates: start: 20071116
  2. OXYCONTIN [Concomitant]
     Indication: PAIN
  3. DILAUDID [Concomitant]
     Indication: PAIN
  4. COMPAZINE [Concomitant]
     Indication: ANTIEMETIC SUPPORTIVE CARE
  5. POTASSIUM SUPPLEMENTS [Concomitant]
  6. ZOMETA [Concomitant]
     Indication: METASTASES TO BONE
  7. ARANESP [Concomitant]
     Indication: COLONY STIMULATING FACTOR THERAPY
  8. PEGFILGRASTIM [Concomitant]
     Indication: COLONY STIMULATING FACTOR THERAPY

REACTIONS (1)
  - DEATH [None]
